FAERS Safety Report 5159496-2 (Version None)
Quarter: 2006Q4

REPORT INFORMATION
  Report Type: 
  Country: None (occurrence: None)
  Receive Date: 20061120
  Receipt Date: 20061113
  Transmission Date: 20070319
  Serious: Yes (Hospitalization)
  Sender: FDA-Public Use
  Company Number: 163-21880-06090108

PATIENT
  Sex: Female

DRUGS (1)
  1. REVLIMID [Suspect]
     Indication: DRUG USE FOR UNKNOWN INDICATION
     Dosage: 160 MG, 16 IN 1 D, ORAL
     Route: 048
     Dates: start: 20060905, end: 20060905

REACTIONS (4)
  - ILL-DEFINED DISORDER [None]
  - MANIA [None]
  - OVERDOSE [None]
  - SELF-MEDICATION [None]
